FAERS Safety Report 6296437-9 (Version None)
Quarter: 2009Q3

REPORT INFORMATION
  Report Type: 
  Country: None (occurrence: None)
  Receive Date: 20090804
  Receipt Date: 20090728
  Transmission Date: 20100115
  Serious: Yes (Other)
  Sender: FDA-Public Use
  Company Number: IT-AMGEN-UK357766

PATIENT
  Sex: Male
  Weight: 100 kg

DRUGS (5)
  1. VECTIBIX [Suspect]
     Indication: COLORECTAL CANCER
     Route: 042
     Dates: start: 20081103, end: 20090605
  2. ATENOLOL [Concomitant]
     Route: 048
  3. FOSINOPRIL SODIUM [Concomitant]
     Route: 048
  4. INSULIN [Concomitant]
     Route: 030
  5. LANTUS [Concomitant]
     Route: 030

REACTIONS (2)
  - DIABETIC FOOT [None]
  - FOLLICULITIS [None]
